FAERS Safety Report 11831662 (Version 2)
Quarter: 2015Q4

REPORT INFORMATION
  Report Type: Report from Study
  Country: US (occurrence: US)
  Receive Date: 20151214
  Receipt Date: 20151216
  Transmission Date: 20160305
  Serious: Yes (Death, Hospitalization, Other)
  Sender: FDA-Public Use
  Company Number: US-BAYER-2014-187531

PATIENT
  Age: 66 Year
  Sex: Female
  Weight: 37.19 kg

DRUGS (8)
  1. LASIX [Concomitant]
     Active Substance: FUROSEMIDE
     Dosage: UNK
  2. ADEMPAS [Suspect]
     Active Substance: RIOCIGUAT
     Indication: PULMONARY HYPERTENSION
     Dosage: UNK
     Route: 048
     Dates: start: 20141110
  3. ADEMPAS [Suspect]
     Active Substance: RIOCIGUAT
     Indication: PULMONARY HYPERTENSION
     Dosage: 0.5 MG, TID
     Route: 048
     Dates: start: 20141114
  4. FLOLAN [Concomitant]
     Active Substance: EPOPROSTENOL SODIUM
     Dosage: UNK
  5. OPSUMIT [Concomitant]
     Active Substance: MACITENTAN
  6. ADEMPAS [Suspect]
     Active Substance: RIOCIGUAT
     Indication: PULMONARY HYPERTENSION
     Dosage: 1.0 MG, TID
     Dates: start: 20141114
  7. ADEMPAS [Suspect]
     Active Substance: RIOCIGUAT
     Indication: PULMONARY HYPERTENSION
     Dosage: 0.5 MG, TID
     Route: 048
  8. TRACLEER [Concomitant]
     Active Substance: BOSENTAN
     Dosage: UNK

REACTIONS (17)
  - Generalised oedema [Recovered/Resolved]
  - Dyspnoea [None]
  - Flatulence [None]
  - Blood pressure fluctuation [None]
  - Adverse event [None]
  - Memory impairment [None]
  - Seizure [None]
  - Fall [Unknown]
  - Epistaxis [None]
  - Seizure [Unknown]
  - Syncope [None]
  - Gingivitis [None]
  - Death [Fatal]
  - Head injury [Unknown]
  - Pulmonary hypertension [None]
  - Hypotension [None]
  - Upper limb fracture [None]

NARRATIVE: CASE EVENT DATE: 20150908
